FAERS Safety Report 8869387 (Version 1)
Quarter: 2012Q4

REPORT INFORMATION
  Report Type: 
  Country: US (occurrence: US)
  Receive Date: 20121023
  Receipt Date: 20121023
  Transmission Date: 20130627
  Serious: No
  Sender: FDA-Public Use
  Company Number: US-AMGEN-USASP2012030950

PATIENT
  Age: 71 Year
  Sex: Female

DRUGS (4)
  1. ENBREL [Suspect]
     Indication: RHEUMATOID ARTHRITIS
     Dosage: 50 mg, qwk
     Dates: start: 200210
  2. ENBREL [Suspect]
     Dosage: 50 mg, qwk
     Dates: start: 20021001
  3. ANTIBIOTICS [Concomitant]
     Indication: SINUSITIS
     Dosage: UNK
  4. ANTIBIOTICS [Concomitant]
     Indication: CYSTITIS

REACTIONS (4)
  - Rheumatoid arthritis [Not Recovered/Not Resolved]
  - Sinusitis [Not Recovered/Not Resolved]
  - Cystitis [Not Recovered/Not Resolved]
  - Injection site pain [Unknown]
